FAERS Safety Report 12567509 (Version 2)
Quarter: 2017Q3

REPORT INFORMATION
  Report Type: Spontaneous
  Country: US (occurrence: US)
  Receive Date: 20160718
  Receipt Date: 20170713
  Transmission Date: 20171127
  Serious: No
  Sender: FDA-Public Use
  Company Number: US-ASTELLAS-2016US025255

PATIENT
  Age: 77 Year
  Sex: Male

DRUGS (1)
  1. MYRBETRIQ [Suspect]
     Active Substance: MIRABEGRON
     Indication: URINARY TRACT INFECTION
     Route: 065
     Dates: end: 2016

REACTIONS (3)
  - Intentional product misuse [Unknown]
  - Off label use [Unknown]
  - Anal incontinence [Recovering/Resolving]
